FAERS Safety Report 8878777 (Version 3)
Quarter: 2012Q4

REPORT INFORMATION
  Report Type: 
  Country: CL (occurrence: CL)
  Receive Date: 20121026
  Receipt Date: 20121226
  Transmission Date: 20130627
  Serious: Yes (Other)
  Sender: FDA-Public Use
  Company Number: PHHY2012CL096426

PATIENT
  Age: 72 Year
  Sex: Female

DRUGS (5)
  1. ACLASTA [Suspect]
     Indication: OSTEOPOROSIS
     Dosage: 5 mg, UNK
     Route: 042
     Dates: start: 201206
  2. LOSARTAN [Concomitant]
     Dosage: UNK UKN, UNK
  3. NITRENDIPINE [Concomitant]
     Dosage: UNK UKN, UNK
  4. OMEPRAZOLE [Concomitant]
     Dosage: UNK UKN, UNK
  5. HIPOGLUCIN [Concomitant]
     Dosage: UNK UKN, UNK

REACTIONS (1)
  - Thrombosis [Recovering/Resolving]
